FAERS Safety Report 6530960-4 (Version None)
Quarter: 2010Q1

REPORT INFORMATION
  Report Type: 
  Country: None (occurrence: None)
  Receive Date: 20100108
  Receipt Date: 20090720
  Transmission Date: 20100710
  Serious: No
  Sender: FDA-Public Use
  Company Number: A0797645A

PATIENT
  Age: 54 Year
  Sex: Male

DRUGS (18)
  1. LOVAZA [Suspect]
     Dosage: 2G TWICE PER DAY
     Route: 048
     Dates: start: 20090301
  2. CRESTOR [Concomitant]
  3. M.V.I. [Concomitant]
  4. LEVOTHYROXINE SODIUM [Concomitant]
  5. PREVACID [Concomitant]
  6. CALCIUM [Concomitant]
  7. DILANTIN [Concomitant]
  8. SENOKOT [Concomitant]
  9. REGLAN [Concomitant]
  10. LACTULOSE [Concomitant]
  11. VIT B12 [Concomitant]
  12. MELATONIN [Concomitant]
  13. NEURONTIN [Concomitant]
  14. ARTHROTEC [Concomitant]
  15. BONIVA [Concomitant]
  16. LIPITOR [Concomitant]
  17. TYLENOL (CAPLET) [Concomitant]
  18. ENSURE [Concomitant]

REACTIONS (2)
  - DECREASED APPETITE [None]
  - MEDICATION ERROR [None]
